FAERS Safety Report 12422418 (Version 2)
Quarter: 2016Q2

REPORT INFORMATION
  Report Type: Report from Study
  Country: KR (occurrence: KR)
  Receive Date: 20160601
  Receipt Date: 20160613
  Transmission Date: 20160815
  Serious: Yes (Hospitalization)
  Sender: FDA-Public Use
  Company Number: KR-ROCHE-1751934

PATIENT
  Age: 57 Year
  Sex: Female
  Weight: 45 kg

DRUGS (44)
  1. TARGIN RETARD [Concomitant]
     Dosage: 5/2.5
     Route: 048
     Dates: start: 20160427, end: 20160501
  2. TARGIN RETARD [Concomitant]
     Route: 048
     Dates: start: 20160508, end: 20160508
  3. DENOGAN [Concomitant]
     Active Substance: PROPACETAMOL HYDROCHLORIDE
     Indication: PYREXIA
     Route: 042
     Dates: start: 20160502, end: 20160520
  4. CAROL-F [Concomitant]
     Route: 048
     Dates: start: 20160314, end: 20160501
  5. MAGNESIUM OXIDE. [Concomitant]
     Active Substance: MAGNESIUM OXIDE
     Indication: CONSTIPATION
     Route: 048
     Dates: start: 20160313
  6. XANAX [Concomitant]
     Active Substance: ALPRAZOLAM
     Indication: MUSCULOSKELETAL CHEST PAIN
     Route: 048
     Dates: start: 20160427, end: 20160501
  7. TARGIN RETARD [Concomitant]
     Dosage: 20/10
     Route: 048
     Dates: start: 20160408, end: 20160501
  8. DUPHALAC EASY [Concomitant]
     Indication: CONSTIPATION
     Route: 048
     Dates: start: 20160313, end: 20160501
  9. MORPHINE HYDROCHLORIDE [Concomitant]
     Active Substance: MORPHINE HYDROCHLORIDE
     Route: 042
     Dates: start: 20160503
  10. TAGAMET [Concomitant]
     Active Substance: CIMETIDINE
     Indication: DYSPEPSIA
     Route: 048
     Dates: start: 20160525
  11. ATEZOLIZUMAB [Suspect]
     Active Substance: ATEZOLIZUMAB
     Indication: METASTATIC NEOPLASM
     Dosage: MOST RECENT DOSE OF ATEZOLIZUMAB PRIOR TO AE ONSET 27APR/2016
     Route: 042
     Dates: start: 20160407
  12. TARGIN RETARD [Concomitant]
     Dosage: 5/2.5
     Route: 048
     Dates: start: 20160314, end: 20160406
  13. IRCODON [Concomitant]
     Route: 048
     Dates: start: 20160408
  14. DUPHALAC EASY [Concomitant]
     Route: 048
     Dates: start: 20160516
  15. SYLCON [Concomitant]
     Indication: CONSTIPATION
     Route: 048
     Dates: start: 20160316, end: 20160426
  16. MEGACE F [Concomitant]
     Indication: DECREASED APPETITE
     Route: 048
     Dates: start: 20160406, end: 20160501
  17. OLIMEL N9E [Concomitant]
     Route: 042
     Dates: start: 20160502, end: 20160507
  18. GASOCOL [Concomitant]
     Route: 048
     Dates: start: 20160513, end: 20160513
  19. MOXR0916 [Suspect]
     Active Substance: INVESTIGATIONAL PRODUCT
     Indication: METASTATIC NEOPLASM
     Dosage: MOST RECENT DOSE OF 300 MG MOXR0916 PRIOR TO AE ONSET 27/APR/2016
     Route: 042
     Dates: start: 20160407
  20. TARGIN RETARD [Concomitant]
     Indication: MUSCULOSKELETAL CHEST PAIN
     Dosage: 10/5
     Route: 048
     Dates: start: 20160314, end: 20160406
  21. DULCOLAX NOS [Concomitant]
     Active Substance: BISACODYL OR DOCUSATE SODIUM
     Indication: CONSTIPATION
     Dosage: SUPPOSITORY
     Route: 054
     Dates: start: 20160427, end: 20160501
  22. NEURONTIN (SOUTH KOREA) [Concomitant]
     Route: 048
     Dates: start: 20160414, end: 20160501
  23. DURICEF [Concomitant]
     Active Substance: CEFADROXIL
     Route: 048
     Dates: start: 20160427, end: 20160501
  24. WINUF [Concomitant]
     Route: 042
     Dates: start: 20160510, end: 20160512
  25. CAROL-F [Concomitant]
     Indication: MUSCULOSKELETAL CHEST PAIN
     Route: 048
     Dates: start: 20160314
  26. RESOLOR [Concomitant]
     Active Substance: PRUCALOPRIDE SUCCINATE
     Route: 048
     Dates: start: 20160516
  27. IRCODON [Concomitant]
     Indication: MUSCULOSKELETAL CHEST PAIN
     Route: 048
     Dates: start: 20160313, end: 20160407
  28. CURAN [Concomitant]
     Active Substance: RANITIDINE HYDROCHLORIDE
     Indication: DYSPEPSIA
     Route: 047
     Dates: start: 20160314, end: 20160501
  29. CURAN [Concomitant]
     Active Substance: RANITIDINE HYDROCHLORIDE
     Route: 048
     Dates: start: 20160508
  30. GLYCERIN. [Concomitant]
     Active Substance: GLYCERIN
     Indication: CONSTIPATION
     Dosage: ENEMA 50%
     Route: 054
     Dates: start: 20160427, end: 20160427
  31. MYPOL (SOUTH KOREA) [Concomitant]
     Indication: MUSCULOSKELETAL CHEST PAIN
     Route: 048
     Dates: start: 20160508
  32. YAL [Concomitant]
     Route: 054
     Dates: start: 20160502, end: 20160502
  33. TARGIN RETARD [Concomitant]
     Route: 048
     Dates: start: 20160508
  34. RESOLOR [Concomitant]
     Active Substance: PRUCALOPRIDE SUCCINATE
     Indication: CONSTIPATION
     Route: 048
     Dates: start: 20160404, end: 20160501
  35. NEURONTIN (SOUTH KOREA) [Concomitant]
     Indication: MUSCULOSKELETAL CHEST PAIN
     Route: 048
     Dates: start: 20160408, end: 20160413
  36. NEURONTIN (SOUTH KOREA) [Concomitant]
     Route: 048
     Dates: start: 20160508
  37. MUCOSTA [Concomitant]
     Active Substance: REBAMIPIDE
     Indication: DYSPEPSIA
     Route: 048
     Dates: start: 20160513
  38. ALGIRON [Concomitant]
     Route: 030
     Dates: start: 20160513, end: 20160513
  39. MORPHINE HYDROCHLORIDE [Concomitant]
     Active Substance: MORPHINE HYDROCHLORIDE
     Indication: MUSCULOSKELETAL CHEST PAIN
     Route: 042
     Dates: start: 20160503
  40. XANAX [Concomitant]
     Active Substance: ALPRAZOLAM
     Route: 048
     Dates: start: 20160502, end: 20160509
  41. TRIDOL [Concomitant]
     Indication: PYREXIA
     Route: 042
     Dates: start: 20160502, end: 20160520
  42. NEXIUM [Concomitant]
     Active Substance: ESOMEPRAZOLE MAGNESIUM
     Indication: PREMEDICATION
     Route: 042
     Dates: start: 20160502, end: 20160502
  43. MORPHINE SULFATE. [Concomitant]
     Active Substance: MORPHINE SULFATE
     Indication: MUSCULOSKELETAL CHEST PAIN
     Route: 042
     Dates: start: 20160502, end: 20160520
  44. YAL [Concomitant]
     Route: 054
     Dates: start: 20160513, end: 20160513

REACTIONS (1)
  - Colitis ischaemic [Recovering/Resolving]

NARRATIVE: CASE EVENT DATE: 20160502
